FAERS Safety Report 6379047-4 (Version None)
Quarter: 2009Q3

REPORT INFORMATION
  Report Type: 
  Country: None (occurrence: None)
  Receive Date: 20090928
  Receipt Date: 20090820
  Transmission Date: 20100115
  Serious: No
  Sender: FDA-Public Use
  Company Number: US-BAYER-200913702BCC

PATIENT
  Age: 70 Year
  Sex: Female
  Weight: 66 kg

DRUGS (1)
  1. ALEVE [Suspect]
     Indication: HEADACHE
     Dosage: TOOK 1 OR 2 ALEVE
     Route: 048

REACTIONS (3)
  - ABDOMINAL DISCOMFORT [None]
  - ARTHRITIS [None]
  - HEADACHE [None]
